FAERS Safety Report 11745911 (Version 1)
Quarter: 2015Q4

REPORT INFORMATION
  Report Type: Spontaneous
  Country: IL (occurrence: IL)
  Receive Date: 20151117
  Receipt Date: 20151117
  Transmission Date: 20160304
  Serious: Yes (Other)
  Sender: FDA-Public Use
  Company Number: IL-BD RX INC-2015BDR00629

PATIENT
  Age: 32 Year
  Sex: Female
  Weight: 75 kg

DRUGS (5)
  1. MORPHINE SULFATE. [Suspect]
     Active Substance: MORPHINE SULFATE
     Indication: SPINAL ANAESTHESIA
     Dosage: 150 ?G, ONCE
     Route: 037
  2. LACTATED RINGERS [Concomitant]
     Active Substance: CALCIUM CHLORIDE\POTASSIUM CHLORIDE\SODIUM CHLORIDE\SODIUM LACTATE
     Dosage: 700 ML, ONCE
  3. CEFTRIAXONE. [Concomitant]
     Active Substance: CEFTRIAXONE
     Dosage: 1 G, ONCE
     Route: 042
  4. BUPIVACAINE 0.5%, HYPERBARIC [Concomitant]
     Indication: SPINAL ANAESTHESIA
     Dosage: 10 MG, ONCE
     Route: 037
  5. LACTATED RINGERS [Concomitant]
     Active Substance: CALCIUM CHLORIDE\POTASSIUM CHLORIDE\SODIUM CHLORIDE\SODIUM LACTATE
     Dosage: 1000 ML, ONCE

REACTIONS (3)
  - Hypothermia [Recovered/Resolved]
  - Temperature regulation disorder [Recovered/Resolved]
  - Exposure during pregnancy [Recovered/Resolved]
